FAERS Safety Report 9647421 (Version 1)
Quarter: 2013Q4

REPORT INFORMATION
  Report Type: Spontaneous
  Country: TR (occurrence: TR)
  Receive Date: 20131028
  Receipt Date: 20131028
  Transmission Date: 20140711
  Serious: Yes (Death)
  Sender: FDA-Public Use
  Company Number: PHHY2013TR117636

PATIENT
  Age: 39 Year
  Sex: Female

DRUGS (6)
  1. DIAZEPAM [Suspect]
     Indication: GRAND MAL CONVULSION
  2. OLANZAPINE [Concomitant]
     Indication: BIPOLAR DISORDER
  3. LITHIUM [Concomitant]
     Indication: BIPOLAR DISORDER
     Dosage: 900 MG, PER DAY
  4. METRONIDAZOLE [Concomitant]
     Indication: CENTRAL NERVOUS SYSTEM ABSCESS
  5. VORICONAZOLE [Concomitant]
     Indication: CENTRAL NERVOUS SYSTEM ABSCESS
  6. LEVETIRACETAM [Concomitant]

REACTIONS (2)
  - Cardiac arrest [Fatal]
  - Drug ineffective [Unknown]
